FAERS Safety Report 14982415 (Version 1)
Quarter: 2018Q2

REPORT INFORMATION
  Report Type: Spontaneous
  Country: US (occurrence: US)
  Receive Date: 20180607
  Receipt Date: 20180607
  Transmission Date: 20180711
  Serious: No
  Sender: FDA-Public Use
  Company Number: US-PFIZER INC-2018226714

PATIENT
  Age: 54 Year
  Sex: Female
  Weight: 63.95 kg

DRUGS (4)
  1. CELECOXIB. [Suspect]
     Active Substance: CELECOXIB
     Indication: ARTHRITIS
     Dosage: 200 MG, 1X/DAY
     Route: 048
     Dates: start: 201708
  2. BUPROPION. [Concomitant]
     Active Substance: BUPROPION
     Indication: ANXIETY
     Dosage: 100 MG, 2X/DAY
  3. AMLODIPINE BESILATE [Suspect]
     Active Substance: AMLODIPINE BESYLATE
     Indication: HYPERTENSION
     Dosage: 5 MG, UNK
  4. LOSARTAN. [Suspect]
     Active Substance: LOSARTAN
     Indication: HYPERTENSION
     Dosage: 50 MG, UNK

REACTIONS (3)
  - Hyperhidrosis [Unknown]
  - Blood pressure inadequately controlled [Not Recovered/Not Resolved]
  - Feeling hot [Unknown]
